FAERS Safety Report 24990142 (Version 2)
Quarter: 2025Q3

REPORT INFORMATION
  Report Type: Report from Study
  Country: US (occurrence: None)
  Receive Date: 20250220
  Receipt Date: 20250810
  Transmission Date: 20251020
  Serious: Yes (Other)
  Sender: ALEXION PHARMACEUTICALS
  Company Number: US-AstraZeneca-2014SE77749

PATIENT
  Age: 53 Year
  Sex: Female
  Weight: 90.718 kg

DRUGS (16)
  1. NEXIUM [Suspect]
     Active Substance: ESOMEPRAZOLE MAGNESIUM
     Indication: Gastrooesophageal reflux disease
     Dosage: 40 MILLIGRAM, QD
     Dates: end: 200901
  2. NEXIUM [Suspect]
     Active Substance: ESOMEPRAZOLE MAGNESIUM
     Dosage: 40 MILLIGRAM, QD
     Dates: end: 20140901
  3. NEXIUM [Suspect]
     Active Substance: ESOMEPRAZOLE MAGNESIUM
     Dosage: 40 MILLIGRAM, QD
     Dates: start: 20140914
  4. LISINOPRIL [Suspect]
     Active Substance: LISINOPRIL
     Indication: Blood pressure abnormal
     Dosage: 10 MILLIGRAM, QD
     Dates: start: 2012, end: 201404
  5. LISINOPRIL [Suspect]
     Active Substance: LISINOPRIL
     Dosage: 5 MILLIGRAM, QD
     Dates: start: 201404, end: 201409
  6. PRILOSEC [Suspect]
     Active Substance: OMEPRAZOLE MAGNESIUM
     Indication: Gastrooesophageal reflux disease
     Dosage: 20.6 MILLIGRAM, QD
     Dates: start: 200901
  7. PRILOSEC [Suspect]
     Active Substance: OMEPRAZOLE MAGNESIUM
     Dosage: 20.6 MILLIGRAM, QD
     Dates: start: 20140901, end: 20140914
  8. METFORMIN [Suspect]
     Active Substance: METFORMIN HYDROCHLORIDE
     Indication: Type 2 diabetes mellitus
     Dosage: 500 MILLIGRAM, QID
     Dates: start: 2011
  9. TRICOR [Suspect]
     Active Substance: FENOFIBRATE
     Indication: Blood cholesterol abnormal
     Dosage: 145 MILLIGRAM, QD
  10. GABAPENTIN [Suspect]
     Active Substance: GABAPENTIN
     Indication: Musculoskeletal stiffness
  11. VICTOZA [Concomitant]
     Active Substance: LIRAGLUTIDE
     Indication: Type 2 diabetes mellitus
     Dosage: 18 MILLIGRAM, QD
     Dates: start: 201305
  12. ADVICOR [Concomitant]
     Active Substance: LOVASTATIN\NIACIN
     Indication: Herpes zoster
     Dosage: 400 MILLIGRAM, BID
  13. MELOXICAM [Concomitant]
     Active Substance: MELOXICAM
     Indication: Arthritis
     Dosage: 15 MILLIGRAM, QD
  14. VESICARE [Concomitant]
     Active Substance: SOLIFENACIN SUCCINATE
     Indication: Bladder disorder
     Dosage: 5 MILLIGRAM, QD
  15. ESTRACE [Concomitant]
     Active Substance: ESTRADIOL
     Route: 065
  16. LABETALOL [Concomitant]
     Active Substance: LABETALOL
     Dosage: 200 MILLIGRAM, BID
     Dates: start: 2012

REACTIONS (22)
  - Spinal fracture [Not Recovered/Not Resolved]
  - Thrombosis [Recovered/Resolved]
  - Musculoskeletal discomfort [Unknown]
  - Bone disorder [Unknown]
  - Ophthalmic herpes zoster [Unknown]
  - Back pain [Unknown]
  - Body height decreased [Unknown]
  - Blood pressure increased [Unknown]
  - Middle ear effusion [Unknown]
  - Asthenia [Unknown]
  - Pain [Unknown]
  - Polycythaemia [Unknown]
  - Fatigue [Unknown]
  - Type 2 diabetes mellitus [Unknown]
  - Blood cholesterol abnormal [Unknown]
  - Musculoskeletal stiffness [Unknown]
  - Dizziness [Recovered/Resolved]
  - Abdominal discomfort [Unknown]
  - Somnolence [Unknown]
  - Constipation [Unknown]
  - Intentional product misuse [Unknown]
  - Drug ineffective [Unknown]

NARRATIVE: CASE EVENT DATE: 20080101
